FAERS Safety Report 23932120 (Version 2)
Quarter: 2024Q3

REPORT INFORMATION
  Report Type: Report from Study
  Country: FR (occurrence: FR)
  Receive Date: 20240603
  Receipt Date: 20240711
  Transmission Date: 20241017
  Serious: Yes (Other)
  Sender: PFIZER
  Company Number: FR-PFIZER INC-202400181570

PATIENT
  Age: 14 Year
  Sex: Male

DRUGS (2)
  1. AXITINIB [Suspect]
     Active Substance: AXITINIB
     Indication: Medulloblastoma
     Dosage: 1.6 MG/M2, 2X/DAY
     Route: 048
  2. ETOPOSIDE [Suspect]
     Active Substance: ETOPOSIDE
     Indication: Medulloblastoma
     Dosage: 15 MG/M2, DAILY
     Route: 048

REACTIONS (4)
  - Thrombocytopenia [Unknown]
  - Blood pressure increased [Unknown]
  - Diarrhoea [Unknown]
  - Proteinuria [Unknown]
